FAERS Safety Report 8419873-0 (Version None)
Quarter: 2012Q2

REPORT INFORMATION
  Report Type: 
  Country: None (occurrence: None)
  Receive Date: 20120607
  Receipt Date: 20120601
  Transmission Date: 20120825
  Serious: Yes (Other)
  Sender: FDA-Public Use
  Company Number: JP-PFIZER INC-2012133027

PATIENT

DRUGS (2)
  1. PREMARIN [Suspect]
     Indication: AMENORRHOEA
  2. PREMARIN [Suspect]
     Indication: OFF LABEL USE
     Dosage: UNK
     Route: 048

REACTIONS (5)
  - OEDEMA [None]
  - GENERAL PHYSICAL HEALTH DETERIORATION [None]
  - HYDROCEPHALUS [None]
  - ALTERED STATE OF CONSCIOUSNESS [None]
  - HYPERSOMNIA [None]
